FAERS Safety Report 17191330 (Version 1)
Quarter: 2019Q4

REPORT INFORMATION
  Report Type: Spontaneous
  Country: US (occurrence: US)
  Receive Date: 20191202
  Receipt Date: 20191202
  Transmission Date: 20200122
  Serious: Yes (Hospitalization)
  Sender: FDA-Public Use
  Company Number: None

PATIENT
  Sex: Female

DRUGS (1)
  1. ESBRIET [Suspect]
     Active Substance: PIRFENIDONE
     Indication: IDIOPATHIC PULMONARY FIBROSIS
     Route: 048
     Dates: start: 20190820

REACTIONS (7)
  - Fatigue [None]
  - Vomiting [None]
  - Decreased appetite [None]
  - Cerebrovascular accident [None]
  - Nausea [None]
  - Diarrhoea [None]
  - Product dose omission [None]
